FAERS Safety Report 4402121-6 (Version None)
Quarter: 2004Q3

REPORT INFORMATION
  Report Type: 
  Country: None (occurrence: None)
  Receive Date: 20040714
  Receipt Date: 20040629
  Transmission Date: 20050211
  Serious: Yes (Hospitalization)
  Sender: FDA-Public Use
  Company Number: US-JNJFOC-20040700348

PATIENT
  Age: 86 Year
  Sex: Female

DRUGS (11)
  1. INFLIXIMAB (INFLIXIMAB, RECOMBINANT) LYOPHILIZED POWDER [Suspect]
     Indication: RHEUMATOID ARTHRITIS
     Dosage: INTRAVENOUS
     Route: 042
     Dates: start: 20010506, end: 20040202
  2. COUMADIN [Concomitant]
  3. DARVOCET N (PROPACET) [Concomitant]
  4. LOPRESSOR [Concomitant]
  5. LORTAB [Concomitant]
  6. PREDNISONE TAB [Concomitant]
  7. METHOTREXATE [Concomitant]
  8. ULTRAM [Concomitant]
  9. VERAPAMIL [Concomitant]
  10. PROTONIX [Concomitant]
  11. ACTONEL (RISEDROANTE SODIUM) [Concomitant]

REACTIONS (8)
  - CLOSTRIDIUM COLITIS [None]
  - COLON CANCER METASTATIC [None]
  - HYPOCALCAEMIA [None]
  - HYPOKALAEMIA [None]
  - HYPOMAGNESAEMIA [None]
  - SMALL INTESTINAL OBSTRUCTION [None]
  - URINARY TRACT INFECTION [None]
  - VENTRICULAR TACHYCARDIA [None]
